FAERS Safety Report 8314940-4 (Version None)
Quarter: 2012Q2

REPORT INFORMATION
  Report Type: 
  Country: None (occurrence: None)
  Receive Date: 20120426
  Receipt Date: 20120419
  Transmission Date: 20120825
  Serious: Yes (Other)
  Sender: FDA-Public Use
  Company Number: AT-B.I. PHARMACEUTICALS,INC./RIDGEFIELD-2012-AP-00328AP

PATIENT
  Sex: Female

DRUGS (1)
  1. PRADAXA [Suspect]
     Indication: EMBOLISM VENOUS
     Dosage: 300 NR
     Route: 048
     Dates: start: 20120101, end: 20120417

REACTIONS (1)
  - ACUTE MYOCARDIAL INFARCTION [None]
